FAERS Safety Report 5306933-6 (Version None)
Quarter: 2007Q2

REPORT INFORMATION
  Report Type: 
  Country: None (occurrence: None)
  Receive Date: 20070425
  Receipt Date: 20070417
  Transmission Date: 20071010
  Serious: Yes (Other)
  Sender: FDA-Public Use
  Company Number: BE-ABBOTT-07P-013-0365271-00

PATIENT
  Age: 76 Year
  Sex: Male

DRUGS (6)
  1. REMIFENTANIL [Suspect]
     Indication: ANAESTHESIA
     Route: 042
  2. REMIFENTANIL [Suspect]
     Dosage: NOT REPORTED
  3. NIMBEX [Suspect]
     Indication: INDUCTION OF ANAESTHESIA
  4. NIMBEX [Suspect]
  5. PROPOFOL [Suspect]
     Indication: ANAESTHESIA
     Route: 042
  6. PROPOFOL [Suspect]
     Dosage: NOT REPORTED

REACTIONS (2)
  - ANAESTHETIC COMPLICATION [None]
  - HYPOTENSION [None]
